FAERS Safety Report 5105253-2 (Version None)
Quarter: 2006Q3

REPORT INFORMATION
  Report Type: 
  Country: None (occurrence: None)
  Receive Date: 20060911
  Receipt Date: 20060822
  Transmission Date: 20061208
  Serious: Yes (Death, Other)
  Sender: FDA-Public Use
  Company Number: US200603002795

PATIENT
  Age: 43 Year
  Sex: Male
  Weight: 113.4 kg

DRUGS (1)
  1. ZYPREXA [Suspect]
     Dosage: 100 MG
     Dates: start: 20030101, end: 20050101

REACTIONS (12)
  - BLOOD TRIGLYCERIDES INCREASED [None]
  - DIABETES MELLITUS [None]
  - DIABETIC COMA [None]
  - DIABETIC KETOACIDOSIS [None]
  - HYPERGLYCAEMIC HYPEROSMOLAR NONKETOTIC SYNDROME [None]
  - HYPERLIPIDAEMIA [None]
  - HYPERTENSION [None]
  - METABOLIC DISORDER [None]
  - OBESITY [None]
  - PANCREATITIS ACUTE [None]
  - PRESCRIBED OVERDOSE [None]
  - RENAL FAILURE [None]
